FAERS Safety Report 25230915 (Version 1)
Quarter: 2025Q2

REPORT INFORMATION
  Report Type: Spontaneous
  Country: ZA (occurrence: ZA)
  Receive Date: 20250423
  Receipt Date: 20250423
  Transmission Date: 20250717
  Serious: Yes (Life-Threatening, Other)
  Sender: ASTELLAS
  Company Number: ZA-SANDOZ-SDZ2025ZA024306

PATIENT
  Age: 81 Year

DRUGS (2)
  1. MICAFUNGIN [Suspect]
     Active Substance: MICAFUNGIN SODIUM
     Indication: Product used for unknown indication
     Dosage: 150 MG, QD
     Route: 065
  2. CILASTATIN SODIUM\IMIPENEM [Suspect]
     Active Substance: CILASTATIN SODIUM\IMIPENEM
     Indication: Product used for unknown indication
     Route: 065

REACTIONS (2)
  - Seizure [Unknown]
  - Illness [Unknown]
